FAERS Safety Report 25512700 (Version 1)
Quarter: 2025Q3

REPORT INFORMATION
  Report Type: Spontaneous
  Country: US (occurrence: US)
  Receive Date: 20250703
  Receipt Date: 20250703
  Transmission Date: 20251020
  Serious: No
  Sender: RADIUS PHARM
  Company Number: US-RADIUS HEALTH INC.-2024US004057

PATIENT
  Sex: Female

DRUGS (3)
  1. TYMLOS [Suspect]
     Active Substance: ABALOPARATIDE
     Indication: Product used for unknown indication
     Dates: start: 202310
  2. TYMLOS [Suspect]
     Active Substance: ABALOPARATIDE
  3. TYMLOS [Suspect]
     Active Substance: ABALOPARATIDE

REACTIONS (5)
  - Intentional product misuse [Recovered/Resolved]
  - Heart rate increased [Unknown]
  - Headache [Unknown]
  - Nausea [Unknown]
  - Intentional dose omission [Unknown]
